FAERS Safety Report 4588344-4 (Version None)
Quarter: 2005Q1

REPORT INFORMATION
  Report Type: 
  Country: None (occurrence: None)
  Receive Date: 20050216
  Receipt Date: 20050210
  Transmission Date: 20050727
  Serious: Yes (Life-Threatening)
  Sender: FDA-Public Use
  Company Number: 200510311GDS

PATIENT
  Age: 71 Year
  Sex: Male

DRUGS (6)
  1. ASPIRIN [Suspect]
     Dosage: 100 MG, TOTAL DAILY, ORAL
     Route: 048
     Dates: start: 20030115
  2. TIMOFTOL 0.25% 3 ML (TIMOLOL MALEATE) [Suspect]
     Indication: GLAUCOMA
     Dosage: INTRAOCULAR
     Route: 031
     Dates: start: 20031101
  3. XALATAN [Suspect]
     Dosage: INTRAOCULAR
     Route: 031
     Dates: start: 20031101
  4. PRINIVIL [Suspect]
     Indication: MALIGNANT HYPERTENSION
     Dosage: 20 MG, TOTAL DAILY, ORAL
     Route: 048
     Dates: start: 20040224
  5. ATORVASTATIN CALCIUM [Suspect]
     Indication: HYPERLIPIDAEMIA
     Dosage: 10 MG, TOTAL DAILY, ORAL
     Route: 048
     Dates: start: 20030314
  6. NUCLOSINA (OMEPRAZOLE) [Suspect]
     Dosage: 20 MG, TOTAL DAILY, ORAL
     Route: 048
     Dates: end: 20040114

REACTIONS (1)
  - BRADYCARDIA [None]
